FAERS Safety Report 4873327-7 (Version None)
Quarter: 2005Q4

REPORT INFORMATION
  Report Type: 
  Country: None (occurrence: None)
  Receive Date: 20051201
  Receipt Date: 20050805
  Transmission Date: 20060501
  Serious: No
  Sender: FDA-Public Use
  Company Number: 2005PV000902

PATIENT
  Age: 54 Year
  Sex: Female
  Weight: 82.5547 kg

DRUGS (14)
  1. BYETTA [Suspect]
     Indication: DIABETES MELLITUS NON-INSULIN-DEPENDENT
     Dosage: 5 MCG; BID; SC
     Route: 058
     Dates: start: 20050712, end: 20050727
  2. GLUCOPHAGE [Concomitant]
  3. AMARYL [Concomitant]
  4. OXYCODONE [Concomitant]
  5. METHADONE HCL [Concomitant]
  6. INDERAL LA [Concomitant]
  7. ASPIRIN [Concomitant]
  8. ZOCOR [Concomitant]
  9. AMBIEN [Concomitant]
  10. NEURONTIN [Concomitant]
  11. FLEXERIL [Concomitant]
  12. ATIVAN [Concomitant]
  13. ZESTRIL [Concomitant]
  14. HYDROCHLOROTHIAZIDE [Concomitant]

REACTIONS (2)
  - NAUSEA [None]
  - PALPITATIONS [None]
